FAERS Safety Report 4498312-9 (Version None)
Quarter: 2004Q4

REPORT INFORMATION
  Report Type: 
  Country: None (occurrence: None)
  Receive Date: 20041109
  Receipt Date: 20041109
  Transmission Date: 20050328
  Serious: Yes (Hospitalization, Other)
  Sender: FDA-Public Use
  Company Number: None

PATIENT
  Age: 68 Year
  Sex: Male
  Weight: 101 kg

DRUGS (2)
  1. METOPROLOL TARTRATE [Suspect]
     Indication: HYPERTENSION
     Dosage: 200 MG BID/ INCREASE DOSE ON 08/21/04
     Dates: start: 20040821
  2. DILTIAZEM HCL [Suspect]
     Indication: HYPERTENSION
     Dosage: 120 MG QD
     Dates: start: 20040831

REACTIONS (1)
  - BRADYCARDIA [None]
